FAERS Safety Report 14669998 (Version 1)
Quarter: 2018Q1

REPORT INFORMATION
  Report Type: Spontaneous
  Country: GB (occurrence: GB)
  Receive Date: 20180322
  Receipt Date: 20180322
  Transmission Date: 20180509
  Serious: Yes (Hospitalization, Disabling, Other)
  Sender: FDA-Public Use
  Company Number: GB-TEVA-2018-GB-873409

PATIENT
  Age: 57 Year
  Sex: Male

DRUGS (8)
  1. NOVORAPID [Concomitant]
     Active Substance: INSULIN ASPART
     Route: 065
  2. LANTUS [Concomitant]
     Active Substance: INSULIN GLARGINE
     Route: 065
  3. LINEZOLID. [Suspect]
     Active Substance: LINEZOLID
     Indication: STAPHYLOCOCCAL INFECTION
     Dosage: 1200 MILLIGRAM DAILY;
     Route: 065
  4. PERINDOPRIL [Concomitant]
     Active Substance: PERINDOPRIL
     Route: 065
  5. METFORMIN HYDROCHLORIDE. [Concomitant]
     Active Substance: METFORMIN HYDROCHLORIDE
     Route: 065
  6. OXYCODONE [Concomitant]
     Active Substance: OXYCODONE
     Route: 065
  7. PARACETAMOL [Concomitant]
     Active Substance: ACETAMINOPHEN
     Route: 065
  8. AMLODIPINE [Concomitant]
     Active Substance: AMLODIPINE BESYLATE
     Route: 065

REACTIONS (4)
  - Temporal arteritis [Recovering/Resolving]
  - Rash generalised [Recovered/Resolved]
  - Tubulointerstitial nephritis [Recovering/Resolving]
  - Eosinophilia [Recovered/Resolved]
